FAERS Safety Report 24406442 (Version 1)
Quarter: 2024Q4

REPORT INFORMATION
  Report Type: Spontaneous
  Country: US (occurrence: US)
  Receive Date: 20241007
  Receipt Date: 20241007
  Transmission Date: 20250115
  Serious: No
  Sender: RECKITT BENCKISER
  Company Number: US-Indivior Limited-INDV-140415-2023

PATIENT
  Age: 43 Year
  Sex: Female

DRUGS (2)
  1. SUBLOCADE [Suspect]
     Active Substance: BUPRENORPHINE
     Indication: Product used for unknown indication
     Dosage: 300 MILLIGRAM, QMO
     Route: 058
     Dates: start: 20230621
  2. SUBLOCADE [Suspect]
     Active Substance: BUPRENORPHINE

REACTIONS (6)
  - Brain fog [Unknown]
  - Euphoric mood [Recovered/Resolved]
  - Abdominal discomfort [Unknown]
  - Feeling jittery [Unknown]
  - Diarrhoea [Unknown]
  - Restlessness [Unknown]

NARRATIVE: CASE EVENT DATE: 20230101
